FAERS Safety Report 24718956 (Version 2)
Quarter: 2024Q4

REPORT INFORMATION
  Report Type: Spontaneous
  Country: US (occurrence: US)
  Receive Date: 20241210
  Receipt Date: 20241217
  Transmission Date: 20250115
  Serious: No
  Sender: PFIZER
  Company Number: US-PFIZER INC-PV202400159952

PATIENT
  Age: 60 Year
  Sex: Male

DRUGS (1)
  1. XELJANZ XR [Suspect]
     Active Substance: TOFACITINIB CITRATE
     Indication: Rheumatoid arthritis
     Dosage: 11 MG, 1X/DAY
     Route: 048
     Dates: start: 20241029, end: 2024

REACTIONS (4)
  - Hypertension [Recovering/Resolving]
  - Pruritus [Recovering/Resolving]
  - Swelling face [Unknown]
  - Acne [Recovering/Resolving]

NARRATIVE: CASE EVENT DATE: 20240101
